FAERS Safety Report 7064834-X (Version None)
Quarter: 2010Q4

REPORT INFORMATION
  Report Type: 
  Country: None (occurrence: None)
  Receive Date: 20101022
  Receipt Date: 20101022
  Transmission Date: 20110411
  Serious: Yes (Other)
  Sender: FDA-Public Use
  Company Number: None

PATIENT
  Age: 21 Year
  Sex: Female
  Weight: 54.4316 kg

DRUGS (1)
  1. VIAGRA [Suspect]
     Indication: DISTURBANCE IN SEXUAL AROUSAL
     Dosage: 1 TABLET PRN PO
     Route: 048
     Dates: start: 20080611, end: 20081001

REACTIONS (2)
  - DEAFNESS TRANSITORY [None]
  - TINNITUS [None]
